FAERS Safety Report 9149372 (Version 1)
Quarter: 2013Q1

REPORT INFORMATION
  Report Type: Spontaneous
  Country: US (occurrence: None)
  Receive Date: 20130301
  Receipt Date: 20130301
  Transmission Date: 20140127
  Serious: Yes (Other)
  Sender: FDA-Public Use
  Company Number: None

PATIENT
  Age: 42 Year
  Sex: Female
  Weight: 68.04 kg

DRUGS (1)
  1. TUBERSOL [Suspect]
     Indication: TUBERCULIN TEST
     Dosage: 1 ML  ONCE  SQ
     Route: 058
     Dates: start: 20130226, end: 20130226

REACTIONS (8)
  - Rash [None]
  - Pruritus [None]
  - Urticaria [None]
  - Angioedema [None]
  - Chest discomfort [None]
  - Blood pressure increased [None]
  - Dyspnoea [None]
  - Anaphylactic reaction [None]
